FAERS Safety Report 9804364 (Version 1)
Quarter: 2014Q1

REPORT INFORMATION
  Report Type: Spontaneous
  Country: US (occurrence: None)
  Receive Date: 20140106
  Receipt Date: 20140106
  Transmission Date: 20141002
  Serious: Yes (Other)
  Sender: FDA-Public Use
  Company Number: 2010S1000542

PATIENT
  Age: 71 Year
  Sex: Female
  Weight: 17 kg

DRUGS (9)
  1. FLEET PHOSPHO-SODA [Suspect]
     Indication: COLONOSCOPY
     Route: 048
  2. RYNATAN (CHLORPHENAMINE TANNATE, PHENYLEPHRINE TANNATE MEPYRAMINE TANNATE) [Concomitant]
  3. PREMARIN (ESTROGENS CONJUGATED) [Concomitant]
  4. NEXIUM (ESOMEPRAZOLE MAGNESIUM) [Concomitant]
  5. ASPIRIN (ACETYLSALICYLIC ACID) [Concomitant]
  6. LEVOTHYROXINE [Concomitant]
  7. TRICOR (ADENOSINE) [Concomitant]
  8. QUINAPRIL (QUINAPRIL) [Concomitant]
  9. ATENOLOL [Concomitant]

REACTIONS (4)
  - Renal failure chronic [None]
  - Coronary artery disease [None]
  - Anaemia of chronic disease [None]
  - Nephrogenic anaemia [None]
